FAERS Safety Report 7293060-4 (Version None)
Quarter: 2011Q1

REPORT INFORMATION
  Report Type: 
  Country: None (occurrence: None)
  Receive Date: 20110215
  Receipt Date: 20110204
  Transmission Date: 20110831
  Serious: Yes (Death)
  Sender: FDA-Public Use
  Company Number: JP-ROCHE-756148

PATIENT
  Age: 52 Year
  Sex: Male

DRUGS (5)
  1. CYCLOSPORINE [Concomitant]
     Dosage: PERORAL AGENT
     Route: 048
  2. TACROLIMUS [Concomitant]
  3. CELLCEPT [Suspect]
     Indication: PROPHYLAXIS AGAINST TRANSPLANT REJECTION
     Route: 048
  4. CYCLOSPORINE [Concomitant]
     Dosage: INTRAVENOUS DRIP
     Route: 048
  5. BASILIXIMAB [Concomitant]
     Dosage: DOSAGE IS UNCERTAIN.
     Route: 041

REACTIONS (2)
  - LIVER ABSCESS [None]
  - BILE DUCT STENOSIS [None]
